FAERS Safety Report 10350972 (Version 1)
Quarter: 2014Q3

REPORT INFORMATION
  Report Type: Spontaneous
  Country: IT (occurrence: IT)
  Receive Date: 20140730
  Receipt Date: 20140730
  Transmission Date: 20150326
  Serious: Yes (Other)
  Sender: FDA-Public Use
  Company Number: IT-ACTAVIS-2014-16282

PATIENT
  Age: 66 Year
  Sex: Female
  Weight: 53 kg

DRUGS (2)
  1. OXALIPLATIN (UNKNOWN) [Suspect]
     Active Substance: OXALIPLATIN
     Indication: COLON CANCER
     Dosage: 100 MG, TOTAL
     Route: 042
     Dates: start: 20130822, end: 20130822
  2. TOMUDEX /01320701/ [Suspect]
     Active Substance: RALTITREXED
     Indication: COLON CANCER
     Dosage: 4.3 MG, TOTAL
     Route: 042
     Dates: start: 20130822, end: 20130822

REACTIONS (2)
  - Hypertransaminasaemia [Recovering/Resolving]
  - Anaemia [Recovering/Resolving]

NARRATIVE: CASE EVENT DATE: 20130916
